FAERS Safety Report 8424842-0 (Version None)
Quarter: 2012Q2

REPORT INFORMATION
  Report Type: 
  Country: None (occurrence: None)
  Receive Date: 20120611
  Receipt Date: 20120529
  Transmission Date: 20120825
  Serious: No
  Sender: FDA-Public Use
  Company Number: US-ASTRAZENECA-2012SE15981

PATIENT
  Sex: Male

DRUGS (2)
  1. NEXIUM [Suspect]
     Route: 048
  2. NEXIUM [Suspect]
     Route: 048

REACTIONS (4)
  - OSTEOPOROSIS [None]
  - INCORRECT DOSE ADMINISTERED [None]
  - MULTIPLE FRACTURES [None]
  - GASTROOESOPHAGEAL REFLUX DISEASE [None]
